FAERS Safety Report 4563805-2 (Version None)
Quarter: 2005Q1

REPORT INFORMATION
  Report Type: 
  Country: None (occurrence: None)
  Receive Date: 20050125
  Receipt Date: 20050116
  Transmission Date: 20050727
  Serious: Yes (Other)
  Sender: FDA-Public Use
  Company Number: 2005015892

PATIENT
  Age: 79 Year
  Sex: Female

DRUGS (4)
  1. NIFEDIPINE [Suspect]
     Indication: ILL-DEFINED DISORDER
  2. TELMISARTAN [Suspect]
     Indication: HYPERTENSION
     Dosage: ORAL
     Route: 048
     Dates: start: 20040801, end: 20040101
  3. DICLOFENAC SODIUM [Concomitant]
  4. ULTRACET [Concomitant]

REACTIONS (2)
  - HEADACHE [None]
  - HYPERTENSION [None]
